FAERS Safety Report 22363679 (Version 2)
Quarter: 2024Q1

REPORT INFORMATION
  Report Type: Spontaneous
  Country: US (occurrence: US)
  Receive Date: 20230525
  Receipt Date: 20240228
  Transmission Date: 20240410
  Serious: Yes (Hospitalization, Other)
  Sender: FDA-Public Use
  Company Number: US-PFIZER INC-US-GBT-020009

PATIENT
  Age: 63 Year
  Sex: Male

DRUGS (3)
  1. OXBRYTA [Suspect]
     Active Substance: VOXELOTOR
     Indication: Sickle cell disease
     Dosage: 1000 MG, 1X/DAY
     Route: 048
     Dates: start: 20210630, end: 202301
  2. OXBRYTA [Suspect]
     Active Substance: VOXELOTOR
     Dosage: 2 TABLETS, ONCE DAILY
     Route: 048
     Dates: start: 20230309
  3. IBSRELA [Concomitant]
     Active Substance: TENAPANOR HYDROCHLORIDE
     Dosage: UNK

REACTIONS (4)
  - Haemoglobin decreased [Unknown]
  - Internal haemorrhage [Unknown]
  - Dyspepsia [Recovered/Resolved]
  - Off label use [Unknown]

NARRATIVE: CASE EVENT DATE: 20210630
